FAERS Safety Report 16434325 (Version 1)
Quarter: 2019Q2

REPORT INFORMATION
  Report Type: Spontaneous
  Country: US (occurrence: US)
  Receive Date: 20190614
  Receipt Date: 20190614
  Transmission Date: 20190711
  Serious: No
  Sender: FDA-Public Use
  Company Number: US-TEVA-2019-US-1052639

PATIENT
  Age: 22 Year
  Sex: Female
  Weight: 68 kg

DRUGS (2)
  1. TRISENOX [Suspect]
     Active Substance: ARSENIC TRIOXIDE
     Indication: LEUKAEMIA
     Dosage: M-F X4 WEEKS THEN 4 WEEKS OFF WITH ATRA DAILY X15 DAYS WITH 15 DAYS OFF (10MG DAILY)
     Route: 065
     Dates: start: 20190506
  2. ATRA [Concomitant]
     Active Substance: TRETINOIN
     Indication: LEUKAEMIA
     Route: 065

REACTIONS (3)
  - Nausea [Unknown]
  - Blood urea decreased [Unknown]
  - Headache [Unknown]

NARRATIVE: CASE EVENT DATE: 20190515
